FAERS Safety Report 19164823 (Version 1)
Quarter: 2021Q2

REPORT INFORMATION
  Report Type: Spontaneous
  Country: JP (occurrence: JP)
  Receive Date: 20210421
  Receipt Date: 20210421
  Transmission Date: 20210717
  Serious: Yes (Hospitalization, Other)
  Sender: FDA-Public Use
  Company Number: JP-PFIZER INC-2021403385

PATIENT
  Age: 81 Year
  Sex: Male
  Weight: 51.4 kg

DRUGS (15)
  1. RISPERIDONE. [Suspect]
     Active Substance: RISPERIDONE
     Dosage: 1 DF, 2X/DAY ( 2 TABLETS)
     Route: 048
  2. CILOSTAZOL. [Suspect]
     Active Substance: CILOSTAZOL
     Dosage: 1 DF, 2X/DAY (2 TABLETS)
     Route: 048
  3. LOXOPROFEN [Suspect]
     Active Substance: LOXOPROFEN
     Dosage: 1 DF, 3X/DAY (3 TABLETS)
     Route: 048
  4. PREGABALIN. [Suspect]
     Active Substance: PREGABALIN
     Dosage: 1 DF, 2X/DAY (2 TABLETS)
     Route: 048
  5. SERTRALINE HCL [Suspect]
     Active Substance: SERTRALINE HYDROCHLORIDE
     Dosage: 1 DF, 1X/DAY
     Route: 048
  6. RILMAZAFONE [Suspect]
     Active Substance: RILMAZAFONE
     Dosage: 1 DF, 1X/DAY
     Route: 048
  7. BROTIZOLAM [Suspect]
     Active Substance: BROTIZOLAM
     Dosage: 1 DF, 1X/DAY
     Route: 048
  8. RAMELTEON [Suspect]
     Active Substance: RAMELTEON
     Dosage: 1 DF, 1X/DAY
     Route: 048
  9. PRAVASTATIN. [Suspect]
     Active Substance: PRAVASTATIN
     Dosage: 1 DF, 1X/DAY
     Route: 048
  10. MAGNESIUM OXIDE. [Suspect]
     Active Substance: MAGNESIUM OXIDE
     Dosage: 4 DF, DAILY (TWICE DAILY AFTER BREAKFAST AND DINNER)
     Route: 048
  11. TAMSULOSIN HYDROCHLORIDE. [Suspect]
     Active Substance: TAMSULOSIN HYDROCHLORIDE
     Dosage: 1 DF, 1X/DAY
     Route: 048
  12. TRIAZOLAM. [Suspect]
     Active Substance: TRIAZOLAM
     Dosage: 1 DF, 1X/DAY
     Route: 048
  13. HALOPERIDOL. [Suspect]
     Active Substance: HALOPERIDOL
     Dosage: 1 DF, 1X/DAY
     Route: 048
  14. TIOTROPIUM [Concomitant]
     Active Substance: TIOTROPIUM
     Dosage: 2 PUFFS PER DOSE, 1X/DAY
  15. TOARASET [Suspect]
     Active Substance: ACETAMINOPHEN\TRAMADOL HYDROCHLORIDE
     Dosage: 1 DF, 3X/DAY (3 TABLETS)
     Route: 048

REACTIONS (9)
  - Off label use [Unknown]
  - Sedation complication [Unknown]
  - Overdose [Unknown]
  - Decubitus ulcer [Recovered/Resolved]
  - Renal impairment [Unknown]
  - Tachycardia [Unknown]
  - Speech disorder [Unknown]
  - Dysphagia [Unknown]
  - Sarcopenia [Unknown]
